FAERS Safety Report 4334629-6 (Version None)
Quarter: 2004Q2

REPORT INFORMATION
  Report Type: 
  Country: None (occurrence: None)
  Receive Date: 20040407
  Receipt Date: 20040330
  Transmission Date: 20050107
  Serious: Yes (Life-Threatening, Hospitalization, Other)
  Sender: FDA-Public Use
  Company Number: DE-MERCK-0403DEU00196

PATIENT
  Age: 52 Year
  Sex: Male
  Weight: 87 kg

DRUGS (7)
  1. CORTICOSTEROIDS (UNSPECIFIED) [Concomitant]
     Indication: MUSCULOSKELETAL PAIN
     Route: 048
  2. DROFENINE HYDROCHLORIDE AND PROPYPHENAZONE [Concomitant]
     Indication: MIGRAINE
     Route: 054
     Dates: start: 20030925
  3. PROPRANOLOL HYDROCHLORIDE [Concomitant]
     Indication: MIGRAINE PROPHYLAXIS
     Route: 048
     Dates: start: 20030801
  4. VIOXX [Suspect]
     Indication: PAIN
     Route: 048
     Dates: start: 20030921
  5. SUMATRIPTAN [Suspect]
     Indication: MIGRAINE
     Route: 065
     Dates: start: 20030925
  6. ZOLMITRIPTAN [Suspect]
     Indication: MIGRAINE
     Route: 048
     Dates: end: 20030901
  7. ZOLMITRIPTAN [Suspect]
     Route: 048
     Dates: start: 20030925

REACTIONS (5)
  - ABDOMINAL PAIN UPPER [None]
  - EROSIVE OESOPHAGITIS [None]
  - MESENTERIC ARTERY STENOSIS [None]
  - MIGRAINE [None]
  - PERITONEAL ADHESIONS [None]
